FAERS Safety Report 5468911-6 (Version None)
Quarter: 2007Q3

REPORT INFORMATION
  Report Type: 
  Country: None (occurrence: None)
  Receive Date: 20070926
  Receipt Date: 20070924
  Transmission Date: 20080115
  Serious: Yes (Other)
  Sender: FDA-Public Use
  Company Number: US-SHR-US-2007-031984

PATIENT
  Age: 30 Year
  Sex: Female

DRUGS (5)
  1. YAZ [Suspect]
     Indication: CONTRACEPTION
     Dosage: 1 TAB(S), 1X/DAY
     Route: 048
     Dates: start: 20060501, end: 20070612
  2. CLONAZEPAM [Concomitant]
     Dosage: .5 MG, 3X/DAY
  3. PAROXETINE [Concomitant]
     Dosage: 20 MG, 1X/DAY
  4. SYNTHROID [Concomitant]
     Dosage: 50 A?G/DAY, 8X/WK
  5. AMBIEN [Concomitant]
     Dosage: 10 MG, BED T.

REACTIONS (11)
  - ACTIVITIES OF DAILY LIVING IMPAIRED [None]
  - CONTRAST MEDIA ALLERGY [None]
  - DEMYELINATION [None]
  - DIARRHOEA [None]
  - DRUG WITHDRAWAL HEADACHE [None]
  - INSOMNIA [None]
  - IRRITABILITY [None]
  - RESTLESSNESS [None]
  - THYROID FUNCTION TEST ABNORMAL [None]
  - TREMOR [None]
  - VISION BLURRED [None]
